FAERS Safety Report 16377298 (Version 2)
Quarter: 2019Q3

REPORT INFORMATION
  Report Type: Spontaneous
  Country: DE (occurrence: DE)
  Receive Date: 20190531
  Receipt Date: 20190805
  Transmission Date: 20191004
  Serious: Yes (Hospitalization, Other)
  Sender: FDA-Public Use
  Company Number: DE-ELI_LILLY_AND_COMPANY-DE201905012419

PATIENT
  Age: 83 Year
  Sex: Female

DRUGS (11)
  1. GLIBENCLAMID [Concomitant]
     Active Substance: GLYBURIDE
     Dosage: 1.75 MG, EACH MORNING
  2. EMSELEX [DARIFENACIN HYDROBROMIDE] [Concomitant]
     Dosage: 75 MG, UNKNOWN
  3. NOVAMINSULFON [Concomitant]
     Active Substance: METAMIZOLE
     Dosage: UNK UNK, PRN
  4. CANDESARTAN. [Concomitant]
     Active Substance: CANDESARTAN
     Dosage: 8 MG, EACH MORNING
  5. PALEXIA [Concomitant]
     Active Substance: TAPENTADOL HYDROCHLORIDE
     Dosage: 50 MG, EACH MORNING
  6. BISOPROLOL [Concomitant]
     Active Substance: BISOPROLOL
     Dosage: 2.5 MG, BID
  7. PALEXIA [Concomitant]
     Active Substance: TAPENTADOL HYDROCHLORIDE
     Dosage: 100 MG, EACH EVENING
  8. GODAMED [Concomitant]
     Active Substance: ASPIRIN
     Dosage: UNK, PRN
  9. OLUMIANT [Suspect]
     Active Substance: BARICITINIB
     Indication: RHEUMATOID ARTHRITIS
     Dosage: 2 MG, UNKNOWN
     Route: 048
     Dates: start: 20190218
  10. OMEPRAZOLE. [Concomitant]
     Active Substance: OMEPRAZOLE
     Dosage: 20 MG, EACH MORNING
  11. XIPAMID [Concomitant]
     Active Substance: XIPAMIDE
     Dosage: 20 MG EACH MORNING

REACTIONS (3)
  - Diverticulitis intestinal haemorrhagic [Recovered/Resolved]
  - Hypokalaemia [Unknown]
  - Colitis [Recovered/Resolved]

NARRATIVE: CASE EVENT DATE: 20190322
